FAERS Safety Report 11833613 (Version 1)
Quarter: 2015Q4

REPORT INFORMATION
  Report Type: Spontaneous
  Country: SA (occurrence: SA)
  Receive Date: 20151214
  Receipt Date: 20151214
  Transmission Date: 20160305
  Serious: Yes (Life-Threatening)
  Sender: FDA-Public Use
  Company Number: SA-HQ SPECIALTY-SA-2015INT000679

PATIENT
  Age: 53 Year

DRUGS (2)
  1. DOXORUBICIN [Suspect]
     Active Substance: DOXORUBICIN
     Indication: ENDOMETRIAL ADENOCARCINOMA
     Dosage: 15 MG/M2, 90 MINUTES, UNK
     Route: 033
  2. CISPLATIN. [Suspect]
     Active Substance: CISPLATIN
     Indication: ENDOMETRIAL ADENOCARCINOMA
     Dosage: 50 MG/M2, 90 MINUTES, UNK
     Route: 033

REACTIONS (3)
  - Deep vein thrombosis postoperative [Unknown]
  - Anastomotic leak [Unknown]
  - Pulmonary embolism [Unknown]
